FAERS Safety Report 7933390-3 (Version None)
Quarter: 2011Q4

REPORT INFORMATION
  Report Type: 
  Country: None (occurrence: None)
  Receive Date: 20111122
  Receipt Date: 20111122
  Transmission Date: 20120403
  Serious: Yes (Other)
  Sender: FDA-Public Use
  Company Number: None

PATIENT
  Age: 84 Year
  Sex: Female
  Weight: 54.431 kg

DRUGS (1)
  1. GEODON [Suspect]
     Indication: ABNORMAL BEHAVIOUR
     Dosage: 20MG
     Route: 048

REACTIONS (10)
  - URINARY INCONTINENCE [None]
  - WITHDRAWAL SYNDROME [None]
  - ABNORMAL BEHAVIOUR [None]
  - CONDITION AGGRAVATED [None]
  - DYSARTHRIA [None]
  - TREMOR [None]
  - MUSCLE CONTRACTIONS INVOLUNTARY [None]
  - DROOLING [None]
  - GAIT DISTURBANCE [None]
  - FAECAL INCONTINENCE [None]
